FAERS Safety Report 18196843 (Version 1)
Quarter: 2020Q3

REPORT INFORMATION
  Report Type: Spontaneous
  Country: US (occurrence: US)
  Receive Date: 20200826
  Receipt Date: 20200826
  Transmission Date: 20201103
  Serious: No
  Sender: FDA-Public Use
  Company Number: US-SPECGX-T202001214

PATIENT
  Age: 58 Year
  Sex: Female
  Weight: 60 kg

DRUGS (5)
  1. OXYCODONE/ACETAMINOPHEN [Suspect]
     Active Substance: ACETAMINOPHEN\OXYCODONE HYDROCHLORIDE
     Dosage: UNK, 4 TIMES A DAY
     Route: 065
     Dates: start: 20200603
  2. AMBIEN [Concomitant]
     Active Substance: ZOLPIDEM TARTRATE
     Indication: SLEEP DISORDER
     Dosage: UNK
     Route: 065
  3. LEXAPRO [Concomitant]
     Active Substance: ESCITALOPRAM OXALATE
     Indication: DEPRESSION
     Dosage: UNK (1 DAY)
     Route: 065
  4. OXYCODONE/ACETAMINOPHEN [Suspect]
     Active Substance: ACETAMINOPHEN\OXYCODONE HYDROCHLORIDE
     Indication: TRIGEMINAL NEURALGIA
     Dosage: UNK
     Route: 065
  5. OXYCODONE/ACETAMINOPHEN [Suspect]
     Active Substance: ACETAMINOPHEN\OXYCODONE HYDROCHLORIDE
     Dosage: UNK, 2 TIMES A DAY
     Route: 065
     Dates: start: 202006

REACTIONS (4)
  - Somnolence [Unknown]
  - Treatment noncompliance [Unknown]
  - Drug ineffective [Unknown]
  - Fatigue [Unknown]

NARRATIVE: CASE EVENT DATE: 20200603
